FAERS Safety Report 15392285 (Version 1)
Quarter: 2018Q3

REPORT INFORMATION
  Report Type: Spontaneous
  Country: US (occurrence: US)
  Receive Date: 20180917
  Receipt Date: 20180917
  Transmission Date: 20181010
  Serious: Yes (Hospitalization, Other)
  Sender: FDA-Public Use
  Company Number: US-JUBILANT CADISTA PHARMACEUTICALS-2018JUB00370

PATIENT
  Age: 69 Year
  Sex: Male
  Weight: 60.1 kg

DRUGS (5)
  1. INCB039110 OR PLACEBO [Suspect]
     Active Substance: ITACITINIB
     Dosage: 100 MG, 1X/DAY
     Route: 048
     Dates: start: 20180426, end: 20180601
  2. HYDROCORTISONE. [Suspect]
     Active Substance: HYDROCORTISONE
     Indication: ACUTE GRAFT VERSUS HOST DISEASE
     Dosage: 30 MG, 1X/DAY
     Route: 048
     Dates: start: 20180523
  3. METHYLPREDNISOLONE. [Suspect]
     Active Substance: METHYLPREDNISOLONE
     Indication: ACUTE GRAFT VERSUS HOST DISEASE
     Dosage: 4 MG, 1X/DAY
     Route: 048
     Dates: start: 20180510
  4. INCB039110 OR PLACEBO [Suspect]
     Active Substance: ITACITINIB
     Indication: ACUTE GRAFT VERSUS HOST DISEASE
     Dosage: 200 MG, 1X/DAY
     Route: 048
     Dates: start: 20180305, end: 20180419
  5. POSACONAZOLE [Concomitant]
     Active Substance: POSACONAZOLE
     Dosage: UNK
     Dates: start: 20180330

REACTIONS (9)
  - Vomiting [Recovered/Resolved]
  - Hypernatraemia [Recovered/Resolved]
  - Gastrooesophageal reflux disease [Unknown]
  - Gastritis erosive [Recovered/Resolved]
  - Diarrhoea [Recovered/Resolved]
  - Hyponatraemia [Recovered/Resolved]
  - Nausea [Recovering/Resolving]
  - Upper gastrointestinal haemorrhage [Recovering/Resolving]
  - Hepatic enzyme increased [Recovered/Resolved]

NARRATIVE: CASE EVENT DATE: 20180524
